FAERS Safety Report 21758025 (Version 2)
Quarter: 2022Q4

REPORT INFORMATION
  Report Type: Spontaneous
  Country: CA (occurrence: CA)
  Receive Date: 20221221
  Receipt Date: 20221224
  Transmission Date: 20230113
  Serious: Yes (Other)
  Sender: FDA-Public Use
  Company Number: CA-CELLTRION INC.-2022CA017565

PATIENT

DRUGS (7)
  1. INFLECTRA [Suspect]
     Active Substance: INFLIXIMAB-DYYB
     Indication: Psoriatic arthropathy
     Dosage: 5 MG/KG AT WEEK 0, 2, 6 WEEKS, THEN EVERY 8 WEEKS
     Route: 042
     Dates: start: 20181221, end: 20190724
  2. INFLECTRA [Suspect]
     Active Substance: INFLIXIMAB-DYYB
     Dosage: 5 MG/KG, RE-INDUCTION: Q 0, 2 AND 6, THEN EVERY 8 WEEKS
     Route: 042
     Dates: start: 20210719, end: 20221012
  3. INFLECTRA [Suspect]
     Active Substance: INFLIXIMAB-DYYB
     Dosage: 5 MG/KG, RE-INDUCTION: Q 0, 2 AND 6, THEN EVERY 8 WEEKS
     Route: 042
     Dates: start: 20220815
  4. INFLECTRA [Suspect]
     Active Substance: INFLIXIMAB-DYYB
     Dosage: 630 MG (SUPPOSED TO RECEIVE 5 MG/KG), RE-INDUCTION: Q 0, 2 AND 6, THEN EVERY 8 WEEKS
     Route: 042
     Dates: start: 20221012
  5. INFLECTRA [Suspect]
     Active Substance: INFLIXIMAB-DYYB
     Dosage: 7 MG/KG EVERY 8 WEEKS
     Route: 042
     Dates: start: 20221207
  6. CORTISONE [Concomitant]
     Active Substance: CORTISONE
     Dosage: 1 DF
     Route: 065
  7. METHOTREXATE [Concomitant]
     Active Substance: METHOTREXATE
     Dosage: 1 DF, UNK DOSE
     Dates: start: 2016

REACTIONS (9)
  - Peripheral arterial occlusive disease [Not Recovered/Not Resolved]
  - Arthralgia [Not Recovered/Not Resolved]
  - Muscle spasms [Not Recovered/Not Resolved]
  - Peripheral coldness [Not Recovered/Not Resolved]
  - Blood pressure diastolic decreased [Unknown]
  - Heart rate decreased [Unknown]
  - Road traffic accident [Recovering/Resolving]
  - Off label use [Unknown]
  - Incorrect dosage administered [Unknown]

NARRATIVE: CASE EVENT DATE: 20221012
